FAERS Safety Report 4471779-8 (Version None)
Quarter: 2004Q4

REPORT INFORMATION
  Report Type: 
  Country: None (occurrence: None)
  Receive Date: 20041007
  Receipt Date: 20040928
  Transmission Date: 20050328
  Serious: Yes (Death)
  Sender: FDA-Public Use
  Company Number: 2004226013AU

PATIENT
  Age: 58 Year
  Sex: Female

DRUGS (9)
  1. ALDACTONE [Suspect]
     Indication: ASCITES
     Dosage: 25 MG, ORAL
     Route: 048
     Dates: start: 20040629, end: 20040715
  2. FUROSEMIDE [Concomitant]
  3. ETHACRYNIC ACID (ETACRYNIC ACID) [Concomitant]
  4. MEROPENEM (MEROPENEM) [Concomitant]
  5. CHLORAMPHENICOL [Concomitant]
  6. MOXIFLOXACIN [Concomitant]
  7. HYDROCORTISONE [Concomitant]
  8. AMIKACIN [Concomitant]
  9. OMEPRAZOLE [Concomitant]

REACTIONS (3)
  - DERMATITIS EXFOLIATIVE [None]
  - DRUG HYPERSENSITIVITY [None]
  - RASH MACULO-PAPULAR [None]
